FAERS Safety Report 4981182-X (Version None)
Quarter: 2006Q2

REPORT INFORMATION
  Report Type: 
  Country: None (occurrence: None)
  Receive Date: 20060418
  Receipt Date: 20060403
  Transmission Date: 20061013
  Serious: Yes (Death, Hospitalization)
  Sender: FDA-Public Use
  Company Number: 2006-BP-03847RO

PATIENT
  Age: 71 Year
  Sex: Female

DRUGS (14)
  1. MERCAPTOPURINE [Suspect]
     Indication: CROHN'S DISEASE
  2. INFLIXIMAB (INFLIXIMAB) [Suspect]
     Indication: CROHN'S DISEASE
     Dosage: (1 IN 8 WK), IV
     Route: 042
  3. MESALAMINE [Concomitant]
  4. PANTOPRAZOLE SODIUM [Concomitant]
  5. LOSARTAN POTASSIUM [Concomitant]
  6. HYDROCHLOROTHIAZIDE [Concomitant]
  7. LOPERAMIDE HCL [Concomitant]
  8. ZOLPIDEM TARTRATE [Concomitant]
  9. INSULIN [Concomitant]
  10. CEFOXITIN (CEFOXITIN) [Concomitant]
  11. VANCOMYCIN [Concomitant]
  12. DEXAMETHASONE [Concomitant]
  13. ONDANSETRON [Concomitant]
  14. CYANOCOBALAMIN [Concomitant]

REACTIONS (13)
  - B-CELL LYMPHOMA [None]
  - BRAIN MASS [None]
  - COORDINATION ABNORMAL [None]
  - EPSTEIN-BARR VIRUS TEST POSITIVE [None]
  - FACIAL PALSY [None]
  - GRAND MAL CONVULSION [None]
  - INGUINAL MASS [None]
  - LOSS OF CONSCIOUSNESS [None]
  - MOVEMENT DISORDER [None]
  - MYOCARDIAL INFARCTION [None]
  - NON-HODGKIN'S LYMPHOMA [None]
  - REFUSAL OF TREATMENT BY RELATIVE [None]
  - SENSORY DISTURBANCE [None]
